FAERS Safety Report 25049946 (Version 1)
Quarter: 2025Q1

REPORT INFORMATION
  Report Type: Report from Study
  Country: CA (occurrence: CA)
  Receive Date: 20250307
  Receipt Date: 20250307
  Transmission Date: 20250408
  Serious: Yes (Other)
  Sender: SANDOZ
  Company Number: CA-002147023-NVSC2020CA060815

PATIENT
  Age: 77 Year
  Sex: Female

DRUGS (3)
  1. ERELZI [Suspect]
     Active Substance: ETANERCEPT-SZZS
     Dosage: 50 MG, QW  (PRE-FILLED PEN)
     Route: 058
     Dates: start: 20250228
  2. ERELZI [Suspect]
     Active Substance: ETANERCEPT-SZZS
     Indication: Rheumatoid arthritis
     Dosage: 50 MG, QW (50 MG IN 1 ML SOLUTION FOR INJECTION IN A PREFILLED AUTOINJECTOR)
     Route: 058
     Dates: start: 20200227
  3. METHOTREXATE [Concomitant]
     Active Substance: METHOTREXATE
     Indication: Product used for unknown indication
     Dosage: 20 MG, QW
     Route: 058
     Dates: start: 2000

REACTIONS (16)
  - Knee operation [Unknown]
  - Limb crushing injury [Unknown]
  - Dysarthria [Unknown]
  - Pain [Unknown]
  - Nodule [Unknown]
  - Fall [Unknown]
  - Ankle fracture [Unknown]
  - Osteoarthritis [Unknown]
  - General physical health deterioration [Unknown]
  - Fall [Unknown]
  - Arthritis [Unknown]
  - Dyspnoea [Unknown]
  - Injection site reaction [Recovered/Resolved]
  - Injection site paraesthesia [Recovering/Resolving]
  - Injection site pain [Unknown]
  - Injection site vesicles [Unknown]

NARRATIVE: CASE EVENT DATE: 20200227
